FAERS Safety Report 10479947 (Version 9)
Quarter: 2015Q1

REPORT INFORMATION
  Report Type: Report from Study
  Country: CA (occurrence: CA)
  Receive Date: 20140929
  Receipt Date: 20150213
  Transmission Date: 20150720
  Serious: Yes (Death, Hospitalization, Other)
  Sender: FDA-Public Use
  Company Number: CA-ROCHE-1440564

PATIENT
  Age: 64 Year
  Sex: Male

DRUGS (17)
  1. METHYLPHENIDATE [Concomitant]
     Active Substance: METHYLPHENIDATE
  2. FLOVENT [Concomitant]
     Active Substance: FLUTICASONE PROPIONATE
  3. AVASTIN [Suspect]
     Active Substance: BEVACIZUMAB
     Indication: GLIOBLASTOMA
     Route: 042
     Dates: start: 20140722, end: 20150126
  4. PANTOPRAZOLE [Concomitant]
     Active Substance: PANTOPRAZOLE SODIUM
  5. CORTISONE [Suspect]
     Active Substance: CORTISONE\HYDROCORTISONE
     Indication: PRODUCT USED FOR UNKNOWN INDICATION
     Route: 065
  6. TYLENOL [Concomitant]
     Active Substance: ACETAMINOPHEN
     Route: 048
     Dates: start: 20140805
  7. DEXAMETHASONE. [Concomitant]
     Active Substance: DEXAMETHASONE
  8. RAPAFLO [Concomitant]
     Active Substance: SILODOSIN
  9. TEMODAL [Concomitant]
     Active Substance: TEMOZOLOMIDE
  10. CARAFATE [Concomitant]
     Active Substance: SUCRALFATE
  11. METHYLPREDNISOLONE. [Concomitant]
     Active Substance: METHYLPREDNISOLONE
     Route: 042
     Dates: start: 20140805, end: 20150126
  12. DOCUSATE SODIUM. [Concomitant]
     Active Substance: DOCUSATE SODIUM
  13. LEVETIRACETAM. [Concomitant]
     Active Substance: LEVETIRACETAM
  14. FENTANYL. [Concomitant]
     Active Substance: FENTANYL
  15. BENADRYL [Concomitant]
     Active Substance: DIPHENHYDRAMINE HYDROCHLORIDE
     Route: 048
     Dates: start: 20140805, end: 20150126
  16. FAMOTIDINE. [Concomitant]
     Active Substance: FAMOTIDINE
  17. ACETAMINOPHEN. [Concomitant]
     Active Substance: ACETAMINOPHEN
     Route: 048
     Dates: start: 20140805, end: 20150126

REACTIONS (14)
  - Spinal fracture [Not Recovered/Not Resolved]
  - Urinary tract infection [Unknown]
  - Oral fungal infection [Not Recovered/Not Resolved]
  - Constipation [Unknown]
  - Protein total decreased [Unknown]
  - Decreased appetite [Unknown]
  - Disease progression [Fatal]
  - Fatigue [Unknown]
  - Dysphagia [Not Recovered/Not Resolved]
  - General physical health deterioration [Unknown]
  - Drug effect decreased [Unknown]
  - Back pain [Not Recovered/Not Resolved]
  - Asthenia [Unknown]
  - Drug administration error [Unknown]

NARRATIVE: CASE EVENT DATE: 20150122
